FAERS Safety Report 7075867-1 (Version None)
Quarter: 2010Q4

REPORT INFORMATION
  Report Type: 
  Country: None (occurrence: None)
  Receive Date: 20101101
  Receipt Date: 20101022
  Transmission Date: 20110411
  Serious: No
  Sender: FDA-Public Use
  Company Number: US-BIOGENIDEC-2010BI037095

PATIENT
  Age: 57 Year
  Sex: Female

DRUGS (2)
  1. TYSABRI [Suspect]
     Indication: MULTIPLE SCLEROSIS
     Route: 042
     Dates: start: 20090604, end: 20091022
  2. TYSABRI [Suspect]
     Route: 042
     Dates: start: 20100730

REACTIONS (4)
  - FUNGAL INFECTION [None]
  - GAIT DISTURBANCE [None]
  - MUSCLE SPASMS [None]
  - URINARY TRACT INFECTION [None]
